FAERS Safety Report 9551761 (Version 1)
Quarter: 2013Q3

REPORT INFORMATION
  Report Type: Spontaneous
  Country: US (occurrence: US)
  Receive Date: 20130925
  Receipt Date: 20130925
  Transmission Date: 20140515
  Serious: No
  Sender: FDA-Public Use
  Company Number: US-BAYER-2013-115641

PATIENT
  Age: 53 Year
  Sex: Female
  Weight: 63.49 kg

DRUGS (4)
  1. ALEVE CAPLET [Suspect]
     Indication: PAIN
     Dosage: 1 DF, PRN
     Route: 048
     Dates: start: 20130923
  2. VITAMIN C [ASCORBIC ACID] [Concomitant]
  3. LUTEIN [Concomitant]
  4. GLUCOSAMINE [GLUCOSAMINE] [Concomitant]

REACTIONS (1)
  - Drug effect decreased [None]
